FAERS Safety Report 23859306 (Version 2)
Quarter: 2024Q3

REPORT INFORMATION
  Report Type: Spontaneous
  Country: US (occurrence: US)
  Receive Date: 20240515
  Receipt Date: 20240701
  Transmission Date: 20241017
  Serious: No
  Sender: JOHNSON AND JOHNSON
  Company Number: US-JNJFOC-20240539238

PATIENT
  Age: 34 Year
  Sex: Female
  Weight: 112 kg

DRUGS (4)
  1. STELARA [Suspect]
     Active Substance: USTEKINUMAB
     Indication: Proctitis ulcerative
     Route: 058
     Dates: start: 20240205
  2. STELARA [Suspect]
     Active Substance: USTEKINUMAB
  3. ASPIRIN [Concomitant]
     Active Substance: ASPIRIN
  4. PRENATAL VITAMINS [ASCORBIC ACID;CALCIUM PANTOTHENATE;CYANOCOBALAMIN;E [Concomitant]

REACTIONS (1)
  - Exposure during pregnancy [Not Recovered/Not Resolved]
